FAERS Safety Report 6342340-5 (Version None)
Quarter: 2009Q3

REPORT INFORMATION
  Report Type: 
  Country: None (occurrence: None)
  Receive Date: 20090907
  Receipt Date: 20090826
  Transmission Date: 20100115
  Serious: Yes (Death, Hospitalization)
  Sender: FDA-Public Use
  Company Number: BE-PFIZER INC-2009239163

PATIENT
  Age: 68 Year

DRUGS (2)
  1. SUTENT [Suspect]
     Dosage: 50 MG, 1X/DAY
     Route: 048
     Dates: start: 20090630, end: 20090712
  2. DURAGESIC-100 [Concomitant]
     Indication: CANCER PAIN
     Dosage: 25 UG, UNK
     Route: 062
     Dates: end: 20090715

REACTIONS (3)
  - LACTIC ACIDOSIS [None]
  - MULTI-ORGAN FAILURE [None]
  - PERITONITIS [None]
